FAERS Safety Report 9565041 (Version 1)
Quarter: 2013Q3

REPORT INFORMATION
  Report Type: Spontaneous
  Country: US (occurrence: US)
  Receive Date: 20130930
  Receipt Date: 20130930
  Transmission Date: 20140515
  Serious: Yes (Other)
  Sender: FDA-Public Use
  Company Number: US-JNJFOC-20130911624

PATIENT
  Sex: Female
  Weight: 75.75 kg

DRUGS (4)
  1. NUCYNTA IR [Suspect]
     Indication: PAIN
     Dosage: 75 MG ^Q6 AS NEEDED^
     Route: 048
     Dates: start: 20130628, end: 20130701
  2. NUCYNTA ER [Suspect]
     Indication: PAIN
     Dosage: TWICE A DAY
     Route: 048
     Dates: start: 20130701, end: 20130705
  3. FENTANYL CITRATE [Suspect]
     Indication: ALLERGY TEST
     Route: 042
     Dates: start: 20130703, end: 20130703
  4. FENTANYL [Suspect]
     Indication: PAIN
     Dosage: THREE TIMES A DAY
     Route: 060
     Dates: start: 20130703, end: 201309

REACTIONS (2)
  - Renal abscess [Not Recovered/Not Resolved]
  - Drug ineffective [Not Recovered/Not Resolved]
